FAERS Safety Report 6516493-X (Version None)
Quarter: 2009Q4

REPORT INFORMATION
  Report Type: 
  Country: None (occurrence: None)
  Receive Date: 20091223
  Receipt Date: 20091215
  Transmission Date: 20100525
  Serious: Yes (Other)
  Sender: FDA-Public Use
  Company Number: CA-JNJFOC-20091204988

PATIENT
  Sex: Female
  Weight: 61.4 kg

DRUGS (6)
  1. REMICADE [Suspect]
     Dosage: 52ND DOSE
     Route: 042
  2. REMICADE [Suspect]
     Indication: RHEUMATOID ARTHRITIS
     Route: 042
  3. ACLASTA [Concomitant]
     Route: 042
  4. METHOTREXATE [Concomitant]
     Route: 048
  5. PULMICORT [Concomitant]
     Dosage: IN THE PM
  6. SEREVENT [Concomitant]
     Dosage: IN THE PM

REACTIONS (10)
  - BLOOD PRESSURE INCREASED [None]
  - DIZZINESS [None]
  - FEELING ABNORMAL [None]
  - HEART RATE INCREASED [None]
  - INFUSION RELATED REACTION [None]
  - NAUSEA [None]
  - PALLOR [None]
  - PALPITATIONS [None]
  - RETCHING [None]
  - VERTIGO POSITIONAL [None]
